FAERS Safety Report 25102909 (Version 1)
Quarter: 2025Q1

REPORT INFORMATION
  Report Type: Report from Study
  Country: US (occurrence: US)
  Receive Date: 20250321
  Receipt Date: 20250321
  Transmission Date: 20250408
  Serious: Yes (Hospitalization, Other)
  Sender: JOHNSON AND JOHNSON
  Company Number: US-JNJFOC-20250219888

PATIENT

DRUGS (1)
  1. XARELTO [Suspect]
     Active Substance: RIVAROXABAN
     Indication: Product used for unknown indication
     Route: 048

REACTIONS (6)
  - Nephrolithiasis [Unknown]
  - Ulcer haemorrhage [Unknown]
  - Anaemia [Unknown]
  - Hypotension [Unknown]
  - Diarrhoea [Unknown]
  - Blood disorder [Unknown]
